FAERS Safety Report 9185829 (Version 2)
Quarter: 2013Q3

REPORT INFORMATION
  Report Type: Report from Study
  Country: US (occurrence: US)
  Receive Date: 20130325
  Receipt Date: 20130930
  Transmission Date: 20140515
  Serious: Yes (Disabling, Other)
  Sender: FDA-Public Use
  Company Number: US-US-EMD SERONO, INC.-7197440

PATIENT
  Sex: Female

DRUGS (2)
  1. REBIF [Suspect]
     Indication: PRIMARY PROGRESSIVE MULTIPLE SCLEROSIS
     Route: 058
     Dates: start: 20030901, end: 201302
  2. KEPPRA [Concomitant]
     Indication: CONVULSION

REACTIONS (4)
  - Thrombosis [Unknown]
  - Primary progressive multiple sclerosis [Not Recovered/Not Resolved]
  - Gallbladder operation [Unknown]
  - Platelet count decreased [Recovered/Resolved]
